FAERS Safety Report 4525972-6 (Version None)
Quarter: 2004Q4

REPORT INFORMATION
  Report Type: 
  Country: None (occurrence: None)
  Receive Date: 20041207
  Receipt Date: 20041118
  Transmission Date: 20050328
  Serious: Yes (Other)
  Sender: FDA-Public Use
  Company Number: B0357406A

PATIENT
  Age: 15 Year
  Sex: Female

DRUGS (3)
  1. AMOXIL [Suspect]
     Indication: PHARYNGITIS
  2. PARACETAMOL [Concomitant]
  3. SODIUM CROMOGLYCATE [Concomitant]

REACTIONS (7)
  - ANGIONEUROTIC OEDEMA [None]
  - ASTHENIA [None]
  - EPSTEIN-BARR VIRUS INFECTION [None]
  - INFECTIOUS MONONUCLEOSIS [None]
  - NO REACTION ON PREVIOUS EXPOSURE TO DRUG [None]
  - RASH MORBILLIFORM [None]
  - RASH PRURITIC [None]
